FAERS Safety Report 17681881 (Version 3)
Quarter: 2020Q2

REPORT INFORMATION
  Report Type: Spontaneous
  Country: GR (occurrence: GR)
  Receive Date: 20200417
  Receipt Date: 20200428
  Transmission Date: 20200714
  Serious: Yes (Other)
  Sender: FDA-Public Use
  Company Number: GR-ROCHE-2583947

PATIENT
  Age: 40 Year
  Sex: Female

DRUGS (3)
  1. MEDROL [Concomitant]
     Active Substance: METHYLPREDNISOLONE
     Route: 065
     Dates: start: 202004
  2. OCREVUS [Suspect]
     Active Substance: OCRELIZUMAB
     Indication: RELAPSING MULTIPLE SCLEROSIS
  3. OCREVUS [Suspect]
     Active Substance: OCRELIZUMAB
     Indication: MULTIPLE SCLEROSIS
     Route: 065
     Dates: start: 20181220

REACTIONS (5)
  - Urinary tract infection [Unknown]
  - Gastrointestinal disorder [Unknown]
  - Pyrexia [Unknown]
  - Vomiting [Unknown]
  - Neutropenia [Recovered/Resolved]

NARRATIVE: CASE EVENT DATE: 2020
